FAERS Safety Report 23512412 (Version 1)
Quarter: 2024Q1

REPORT INFORMATION
  Report Type: Spontaneous
  Country: US (occurrence: None)
  Receive Date: 20240209
  Receipt Date: 20240209
  Transmission Date: 20240409
  Serious: Yes (Death, Hospitalization)
  Sender: FDA-Public Use
  Company Number: None

PATIENT
  Age: 63 Year
  Sex: Female

DRUGS (2)
  1. AMBRISENTAN [Suspect]
     Active Substance: AMBRISENTAN
     Indication: Pulmonary arterial hypertension
     Dosage: FREQUENCY : DAILY;?
     Route: 048
     Dates: start: 20230323, end: 20230328
  2. SILDENAFIL [Suspect]
     Active Substance: SILDENAFIL

REACTIONS (7)
  - Abdominal pain [None]
  - Nausea [None]
  - Vomiting [None]
  - Shock [None]
  - Infection [None]
  - Pulmonary hypertension [None]
  - Gastrointestinal haemorrhage [None]

NARRATIVE: CASE EVENT DATE: 20231228
